FAERS Safety Report 13361579 (Version 3)
Quarter: 2017Q3

REPORT INFORMATION
  Report Type: Spontaneous
  Country: IT (occurrence: IT)
  Receive Date: 20170323
  Receipt Date: 20170729
  Transmission Date: 20171127
  Serious: Yes (Other)
  Sender: FDA-Public Use
  Company Number: IT-ROCHE-1752424

PATIENT
  Age: 67 Year
  Sex: Female

DRUGS (11)
  1. PANTOPRAZOLE [Concomitant]
     Active Substance: PANTOPRAZOLE
  2. ROACTEMRA [Suspect]
     Active Substance: TOCILIZUMAB
     Route: 042
  3. URBASON [Suspect]
     Active Substance: METHYLPREDNISOLONE
     Indication: PREMEDICATION
     Dosage: PREMEDICATION
     Route: 042
     Dates: start: 20170228, end: 20170228
  4. URBASON [Suspect]
     Active Substance: METHYLPREDNISOLONE
     Route: 042
  5. NEXIUM [Concomitant]
     Active Substance: ESOMEPRAZOLE MAGNESIUM
  6. CARDIRENE [Concomitant]
     Active Substance: ASPIRIN DL-LYSINE
  7. ROACTEMRA [Suspect]
     Active Substance: TOCILIZUMAB
     Indication: RHEUMATOID ARTHRITIS
     Route: 042
     Dates: start: 20130312, end: 20160324
  8. APROVEL [Concomitant]
     Active Substance: IRBESARTAN
  9. PROLIA [Concomitant]
     Active Substance: DENOSUMAB
  10. DIBASE [Concomitant]
     Active Substance: CHOLECALCIFEROL
  11. CARDIOASPIRIN [Concomitant]
     Active Substance: ASPIRIN

REACTIONS (3)
  - Vertigo [Recovered/Resolved]
  - Dizziness [Recovered/Resolved]
  - Blood pressure increased [Recovered/Resolved]

NARRATIVE: CASE EVENT DATE: 20160327
